FAERS Safety Report 9057339 (Version 1)
Quarter: 2013Q1

REPORT INFORMATION
  Report Type: Spontaneous
  Country: BE (occurrence: BE)
  Receive Date: 20130201
  Receipt Date: 20130201
  Transmission Date: 20140127
  Serious: Yes (Other)
  Sender: FDA-Public Use
  Company Number: BE-ROCHE-1184045

PATIENT
  Sex: Female
  Weight: 64 kg

DRUGS (8)
  1. HERCEPTIN [Suspect]
     Indication: BREAST CANCER METASTATIC
     Route: 065
     Dates: start: 200403
  2. HERCEPTIN [Suspect]
     Route: 065
     Dates: start: 201202
  3. PACLITAXEL [Suspect]
     Indication: BREAST CANCER METASTATIC
     Route: 065
     Dates: start: 200403
  4. PACLITAXEL [Suspect]
     Route: 065
     Dates: start: 201202
  5. ANASTROZOLE [Suspect]
     Indication: BREAST CANCER METASTATIC
     Route: 065
     Dates: start: 200409
  6. ZOLEDRONATE [Suspect]
     Indication: BREAST CANCER METASTATIC
     Route: 065
  7. XELODA [Suspect]
     Indication: BREAST CANCER METASTATIC
     Route: 065
     Dates: start: 201301
  8. LAPATINIB [Suspect]
     Indication: BREAST CANCER METASTATIC
     Route: 065
     Dates: start: 201301

REACTIONS (5)
  - Aspartate aminotransferase increased [Unknown]
  - Disease progression [Unknown]
  - Diarrhoea [Unknown]
  - Vomiting [Unknown]
  - Weight decreased [Unknown]
